FAERS Safety Report 23245922 (Version 1)
Quarter: 2023Q4

REPORT INFORMATION
  Report Type: Spontaneous
  Country: PL (occurrence: PL)
  Receive Date: 20231130
  Receipt Date: 20231130
  Transmission Date: 20240110
  Serious: Yes (Other)
  Sender: FDA-Public Use
  Company Number: PL-SA-2023SA365934

PATIENT
  Sex: Female

DRUGS (13)
  1. PREDNISONE [Suspect]
     Active Substance: PREDNISONE
     Indication: B-cell type acute leukaemia
     Dosage: UNK
     Dates: end: 201711
  2. FLUDARABINE PHOSPHATE [Suspect]
     Active Substance: FLUDARABINE PHOSPHATE
     Indication: Bone marrow conditioning regimen
     Dosage: UNK
     Dates: start: 201703, end: 201711
  3. FLUDARABINE PHOSPHATE [Suspect]
     Active Substance: FLUDARABINE PHOSPHATE
     Indication: B-cell type acute leukaemia
  4. ANTI-THYMOCYTE GLOBULIN (RABBIT) NOS [Suspect]
     Active Substance: LAPINE T-LYMPHOCYTE IMMUNE GLOBULIN
     Indication: B-cell type acute leukaemia
     Dosage: UNK
     Dates: start: 201703, end: 201711
  5. METHOTREXATE [Suspect]
     Active Substance: METHOTREXATE
     Indication: B-cell type acute leukaemia
     Dosage: UNK
     Dates: start: 201703, end: 201711
  6. TREOSULFAN [Suspect]
     Active Substance: TREOSULFAN
     Indication: Bone marrow conditioning regimen
     Dosage: UNK
     Dates: start: 201703, end: 201711
  7. TREOSULFAN [Suspect]
     Active Substance: TREOSULFAN
     Indication: B-cell type acute leukaemia
  8. THIOTEPA [Suspect]
     Active Substance: THIOTEPA
     Indication: Bone marrow conditioning regimen
     Dosage: UNK
     Dates: start: 201703, end: 201711
  9. THIOTEPA [Suspect]
     Active Substance: THIOTEPA
     Indication: B-cell type acute leukaemia
  10. CYCLOSPORINE [Suspect]
     Active Substance: CYCLOSPORINE
     Indication: B-cell type acute leukaemia
     Dosage: UNK
     Dates: start: 201703, end: 201711
  11. PLATELETS [Concomitant]
     Active Substance: HUMAN PLATELET, ALLOGENIC
     Indication: Thalassaemia alpha
  12. HUMAN RED BLOOD CELL [Concomitant]
     Active Substance: HUMAN RED BLOOD CELL
     Indication: Thalassaemia alpha
  13. LEVOTHYROXINE [Concomitant]
     Active Substance: LEVOTHYROXINE
     Indication: Central hypothyroidism

REACTIONS (11)
  - Hepatotoxicity [Unknown]
  - Escherichia bacteraemia [Recovered/Resolved]
  - Pyrexia [Recovered/Resolved]
  - Mucosal inflammation [Unknown]
  - Pathogen resistance [Recovered/Resolved]
  - Device related infection [Recovered/Resolved]
  - Molluscum contagiosum [Recovered/Resolved]
  - Haematological infection [Recovered/Resolved]
  - Staphylococcal infection [Recovered/Resolved]
  - Clostridium difficile colitis [Recovered/Resolved]
  - Off label use [Unknown]
